FAERS Safety Report 7422181-8 (Version None)
Quarter: 2011Q2

REPORT INFORMATION
  Report Type: 
  Country: None (occurrence: None)
  Receive Date: 20110418
  Receipt Date: 20110406
  Transmission Date: 20111010
  Serious: Yes (Other)
  Sender: FDA-Public Use
  Company Number: RU-BAYER-2011-029544

PATIENT
  Sex: Female

DRUGS (1)
  1. YARINA [Suspect]
     Indication: MENOPAUSE
     Dosage: 1 DF, QD
     Route: 048
     Dates: start: 20100131, end: 20100220

REACTIONS (4)
  - ABDOMINAL PAIN LOWER [None]
  - WEIGHT INCREASED [None]
  - BACK PAIN [None]
  - INSOMNIA [None]
